FAERS Safety Report 9026355 (Version 1)
Quarter: 2013Q1

REPORT INFORMATION
  Report Type: Spontaneous
  Country: GB (occurrence: None)
  Receive Date: 20130104
  Receipt Date: 20130104
  Transmission Date: 20140127
  Serious: Yes (Hospitalization)
  Sender: FDA-Public Use
  Company Number: B0856262A

PATIENT
  Age: 72 Year
  Sex: Female

DRUGS (1)
  1. MALARONE (FORMULATION UNKONWN) (ATOVAQUONE/PROQUANIL HCL) [Suspect]
     Indication: MALARIA PROPHYLAXIS

REACTIONS (1)
  - Erythema multiforme [None]
